FAERS Safety Report 16111079 (Version 1)
Quarter: 2019Q2

REPORT INFORMATION
  Report Type: Spontaneous
  Country: US (occurrence: US)
  Receive Date: 20190322
  Receipt Date: 20190322
  Transmission Date: 20190711
  Serious: Yes (Other)
  Sender: FDA-Public Use
  Company Number: None

PATIENT
  Age: 33 Year
  Sex: Female
  Weight: 83.25 kg

DRUGS (11)
  1. AIMOVIG [Concomitant]
     Active Substance: ERENUMAB-AOOE
     Indication: MIGRAINE
     Dosage: ?          QUANTITY:1 INJECTION(S);OTHER FREQUENCY:ONCE MONTHLY;?
     Route: 061
     Dates: start: 20181219, end: 20190123
  2. ONDANSETRON ODT 4 MG DISINTERGRATING TABLET [Concomitant]
  3. RIZATRIPTAN 10 MG TABLET [Concomitant]
     Active Substance: RIZATRIPTAN
  4. BUPROPION XL 300 MG 24 HR TABLET [Concomitant]
  5. PROBIOTICS METHYL-GUARD PLUS (RIBOFLAVIN 90 MG, VITAMIN B6, VITAMIN B12 3 MG, FOLATE 5 MG DFE) [Concomitant]
  6. ZYRTEC [Concomitant]
     Active Substance: CETIRIZINE HYDROCHLORIDE
  7. PROMETHAZINE [Concomitant]
     Active Substance: PROMETHAZINE\PROMETHAZINE HYDROCHLORIDE
  8. MONTELUKAST 10 MG TABLET [Concomitant]
  9. CAMBIA 50 MG [Concomitant]
  10. BUPROPION XL 150 MG TABLET [Concomitant]
  11. IBUPROFEN 800 MG TABLET [Concomitant]

REACTIONS (1)
  - Colitis ulcerative [None]

NARRATIVE: CASE EVENT DATE: 20190104
